FAERS Safety Report 6592820-2 (Version None)
Quarter: 2010Q1

REPORT INFORMATION
  Report Type: 
  Country: None (occurrence: None)
  Receive Date: 20100222
  Receipt Date: 20100208
  Transmission Date: 20100710
  Serious: Yes (Other)
  Sender: FDA-Public Use
  Company Number: NO-BAYER-200943169GPV

PATIENT
  Age: 51 Year
  Sex: Male

DRUGS (3)
  1. BETAFERON [Suspect]
     Indication: MULTIPLE SCLEROSIS
     Dates: start: 20080101, end: 20091110
  2. TEGRETOL [Concomitant]
  3. METFORMIN [Concomitant]

REACTIONS (2)
  - DIABETIC RETINOPATHY [None]
  - NECROTISING RETINITIS [None]
